FAERS Safety Report 8228943-1 (Version None)
Quarter: 2012Q1

REPORT INFORMATION
  Report Type: 
  Country: None (occurrence: None)
  Receive Date: 20120322
  Receipt Date: 20120313
  Transmission Date: 20120608
  Serious: Yes (Other)
  Sender: FDA-Public Use
  Company Number: US-JNJFOC-20120308055

PATIENT
  Age: 11 Year
  Sex: Male

DRUGS (2)
  1. RISPERDAL [Concomitant]
     Route: 048
  2. TOPAMAX [Suspect]
     Indication: MIGRAINE
     Route: 048
     Dates: start: 20110601, end: 20110601

REACTIONS (4)
  - PERIORBITAL OEDEMA [None]
  - VISION BLURRED [None]
  - ABNORMAL SENSATION IN EYE [None]
  - MYDRIASIS [None]
